FAERS Safety Report 16470344 (Version 1)
Quarter: 2019Q2

REPORT INFORMATION
  Report Type: Spontaneous
  Country: US (occurrence: US)
  Receive Date: 20190514
  Receipt Date: 20190514
  Transmission Date: 20190711
  Serious: Yes (Hospitalization)
  Sender: FDA-Public Use
  Company Number: None

PATIENT
  Age: 87 Year
  Sex: Male
  Weight: 69.4 kg

DRUGS (2)
  1. METOPROLOL. [Suspect]
     Active Substance: METOPROLOL
     Route: 048
  2. MIRTAZAPINE. [Suspect]
     Active Substance: MIRTAZAPINE
     Indication: ATRIAL FIBRILLATION
     Route: 048
     Dates: start: 20181214, end: 20181228

REACTIONS (5)
  - Feeling drunk [None]
  - Fall [None]
  - Hypertension [None]
  - Sedation [None]
  - Lethargy [None]

NARRATIVE: CASE EVENT DATE: 20181227
